FAERS Safety Report 12012667 (Version 1)
Quarter: 2016Q1

REPORT INFORMATION
  Report Type: Spontaneous
  Country: US (occurrence: US)
  Receive Date: 20160205
  Receipt Date: 20160205
  Transmission Date: 20160526
  Serious: Yes (Other)
  Sender: FDA-Public Use
  Company Number: 150223MM

PATIENT
  Sex: Female

DRUGS (1)
  1. FLUOCINOLONE ACETONIDE TOPICAL OIL, 0.01 % [Suspect]
     Active Substance: FLUOCINOLONE ACETONIDE
     Indication: APPLICATION SITE PRURITUS
     Route: 061

REACTIONS (1)
  - Drug ineffective [Unknown]
